FAERS Safety Report 20914042 (Version 2)
Quarter: 2024Q2

REPORT INFORMATION
  Report Type: Spontaneous
  Country: JP (occurrence: JP)
  Receive Date: 20220604
  Receipt Date: 20240621
  Transmission Date: 20240716
  Serious: Yes (Death, Other)
  Sender: FDA-Public Use
  Company Number: JP-UNITED THERAPEUTICS-UNT-2021-020485

PATIENT
  Age: 11 Year
  Sex: Male
  Weight: 23.8 kg

DRUGS (9)
  1. UNITUXIN [Suspect]
     Active Substance: DINUTUXIMAB
     Indication: Neuroblastoma recurrent
     Dosage: 17.5 MG/M2 (AT RATE OF 2.5 ML/HR DILUTED WITH 50 ML DOSE SALINE), CYCLICAL (CYCLE 1))
     Route: 041
     Dates: start: 20211005, end: 20211007
  2. UNITUXIN [Suspect]
     Active Substance: DINUTUXIMAB
     Dosage: UNK (AT RATE OF 1.3 ML/HR DILUTED WITH 50ML DOSE SALINE), CYCLICAL (CYCLE 1)
     Route: 041
     Dates: start: 20211007, end: 20211008
  3. UNITUXIN [Suspect]
     Active Substance: DINUTUXIMAB
     Dosage: UNK, CYCLICAL
     Route: 041
  4. FILGRASTIM [Concomitant]
     Active Substance: FILGRASTIM
     Indication: Neuroblastoma recurrent
     Dosage: UNK
     Dates: start: 20211002, end: 20211015
  5. HYDROXYZINE HYDROCHLORIDE [Concomitant]
     Active Substance: HYDROXYZINE HYDROCHLORIDE
     Indication: Allergy prophylaxis
     Dosage: UNK
     Dates: start: 20211005, end: 20211007
  6. MORPHINE HYDROCHLORIDE [Concomitant]
     Active Substance: MORPHINE HYDROCHLORIDE
     Indication: Pain prophylaxis
     Dosage: 20 ?G/KG/HR
     Route: 041
     Dates: start: 20211005, end: 20211005
  7. MORPHINE HYDROCHLORIDE [Concomitant]
     Active Substance: MORPHINE HYDROCHLORIDE
     Dosage: 40 ?G/KG/HR (INCREASED DOSE)
     Route: 041
     Dates: start: 20211005, end: 20211005
  8. MORPHINE HYDROCHLORIDE [Concomitant]
     Active Substance: MORPHINE HYDROCHLORIDE
     Dosage: 60 ?G/KG/HR
     Route: 041
     Dates: start: 20211005, end: 20211008
  9. ACETAMINOPHEN [Concomitant]
     Active Substance: ACETAMINOPHEN
     Indication: Prophylaxis
     Dosage: UNK
     Dates: start: 20211005, end: 20211007

REACTIONS (5)
  - Neuroblastoma recurrent [Fatal]
  - Vision blurred [Recovered/Resolved]
  - Abdominal pain [Recovered/Resolved]
  - Bone pain [Recovered/Resolved]
  - Drug ineffective [Unknown]

NARRATIVE: CASE EVENT DATE: 20211001
